FAERS Safety Report 8078706-5 (Version None)
Quarter: 2012Q1

REPORT INFORMATION
  Report Type: 
  Country: None (occurrence: None)
  Receive Date: 20120124
  Receipt Date: 20120111
  Transmission Date: 20120608
  Serious: Yes (Death)
  Sender: FDA-Public Use
  Company Number: 2012AP000085

PATIENT
  Age: 85 Year
  Sex: Male

DRUGS (5)
  1. CETIRIZINE [Concomitant]
  2. VALSARTAN [Concomitant]
  3. BENDROFLUAZIDE (BENDROFLUAZIDE) [Concomitant]
  4. PERINDOPRIL ERBUMINE [Suspect]
     Indication: HYPERTENSION
     Dosage: 2 MG;PO ; 4 MG;PO
     Route: 048
     Dates: start: 20111114
  5. PERINDOPRIL ERBUMINE [Suspect]
     Indication: HYPERTENSION
     Dosage: 2 MG;PO ; 4 MG;PO
     Route: 048
     Dates: start: 20111103, end: 20111113

REACTIONS (3)
  - BLOOD SODIUM DECREASED [None]
  - SUDDEN DEATH [None]
  - CIRCULATORY COLLAPSE [None]
